FAERS Safety Report 20709973 (Version 1)
Quarter: 2022Q2

REPORT INFORMATION
  Report Type: Spontaneous
  Country: AE (occurrence: AE)
  Receive Date: 20220414
  Receipt Date: 20220414
  Transmission Date: 20220721
  Serious: Yes (Hospitalization, Other)
  Sender: FDA-Public Use
  Company Number: AE-EDENBRIDGE PHARMACEUTICALS, LLC-AE-2022EDE000024

PATIENT
  Age: 45 Year
  Sex: Female

DRUGS (1)
  1. PREDNISOLONE SODIUM PHOSPHATE [Suspect]
     Active Substance: PREDNISOLONE SODIUM PHOSPHATE
     Indication: Ophthalmoplegia
     Dosage: 1 MG/KG, QD
     Route: 048

REACTIONS (2)
  - Diabetic ketoacidosis [Unknown]
  - Myopathy [Unknown]
